FAERS Safety Report 24294845 (Version 1)
Quarter: 2024Q3

REPORT INFORMATION
  Report Type: Spontaneous
  Country: US (occurrence: US)
  Receive Date: 20240907
  Receipt Date: 20240907
  Transmission Date: 20241017
  Serious: No
  Sender: AIMMUNE
  Company Number: US-AIMMUNE THERAPEUTICS, INC.-2023AIMT01054

PATIENT

DRUGS (7)
  1. ZENPEP [Suspect]
     Active Substance: PANCRELIPASE AMYLASE\PANCRELIPASE LIPASE\PANCRELIPASE PROTEASE
     Indication: Pancreatic failure
     Dosage: 40 000 USP UNITS, WITH MEALS
     Route: 048
     Dates: start: 2019, end: 20230928
  2. ZENPEP [Suspect]
     Active Substance: PANCRELIPASE AMYLASE\PANCRELIPASE LIPASE\PANCRELIPASE PROTEASE
     Dosage: 40 000 USP UNITS, ONCE, LAST DOSE PRIOR TO EVENTS
     Route: 048
     Dates: start: 20230928, end: 20230928
  3. NORVASC [Concomitant]
     Active Substance: AMLODIPINE BESYLATE
     Indication: Blood pressure abnormal
     Dosage: 5 MG
     Dates: start: 2014
  4. LOPRESSOR [Concomitant]
     Active Substance: METOPROLOL TARTRATE
     Indication: Blood pressure abnormal
     Dosage: 50 MG
     Dates: start: 2014
  5. HYDROCODONE [Concomitant]
     Active Substance: HYDROCODONE
     Indication: Pain
  6. CLONAZEPAM [Concomitant]
     Active Substance: CLONAZEPAM
     Indication: Anxiety
     Dosage: UNK
     Dates: start: 2013
  7. GABAPENTIN [Concomitant]
     Active Substance: GABAPENTIN
     Indication: Pancreatic disorder
     Dosage: 300 MG
     Dates: start: 2019

REACTIONS (4)
  - Malaise [Not Recovered/Not Resolved]
  - Product dose omission issue [Not Recovered/Not Resolved]
  - Abdominal distension [Not Recovered/Not Resolved]
  - Abdominal discomfort [Not Recovered/Not Resolved]

NARRATIVE: CASE EVENT DATE: 20230928
